FAERS Safety Report 8612628-3 (Version None)
Quarter: 2012Q3

REPORT INFORMATION
  Report Type: 
  Country: None (occurrence: None)
  Receive Date: 20120822
  Receipt Date: 20110913
  Transmission Date: 20120928
  Serious: No
  Sender: FDA-Public Use
  Company Number: US-ASTRAZENECA-2011SE55200

PATIENT
  Age: 69 Year
  Sex: Male
  Weight: 117.9 kg

DRUGS (3)
  1. SPIRIVA [Concomitant]
     Indication: CHRONIC OBSTRUCTIVE PULMONARY DISEASE
  2. SYMBICORT [Suspect]
     Indication: CHRONIC OBSTRUCTIVE PULMONARY DISEASE
     Dosage: 2 PUFFS, TWO TIMES A DAY
     Route: 055
     Dates: start: 20110101
  3. ISOCOR [Concomitant]
     Indication: HYPERTENSION

REACTIONS (3)
  - MUSCULOSKELETAL DISCOMFORT [None]
  - PARAESTHESIA [None]
  - HYPOAESTHESIA [None]
